FAERS Safety Report 12680135 (Version 2)
Quarter: 2016Q3

REPORT INFORMATION
  Report Type: Spontaneous
  Country: FR (occurrence: FR)
  Receive Date: 20160824
  Receipt Date: 20160914
  Transmission Date: 20161109
  Serious: Yes (Death, Other)
  Sender: FDA-Public Use
  Company Number: FR-GLAXOSMITHKLINE-FR2016GSK120886

PATIENT
  Sex: Male

DRUGS (1)
  1. TIMENTIN [Suspect]
     Active Substance: CLAVULANATE POTASSIUM\TICARCILLIN DISODIUM
     Indication: LUNG DISORDER
     Dosage: UNK

REACTIONS (2)
  - Cardiac arrest [Fatal]
  - Cardiopulmonary failure [Fatal]
